FAERS Safety Report 8029906-1 (Version None)
Quarter: 2012Q1

REPORT INFORMATION
  Report Type: 
  Country: None (occurrence: None)
  Receive Date: 20120109
  Receipt Date: 20111226
  Transmission Date: 20120608
  Serious: Yes (Hospitalization, Other)
  Sender: FDA-Public Use
  Company Number: US-RANBAXY-2011RR-51622

PATIENT
  Sex: Male

DRUGS (7)
  1. LEVAQUIN [Suspect]
     Dosage: 750 MG, UNK
     Route: 048
     Dates: start: 20081001
  2. LEVOFLOXACIN [Suspect]
     Indication: INFECTION
     Dosage: 500 MG, UNK
     Route: 042
     Dates: start: 20081101
  3. CIPROFLOXACIN [Suspect]
     Indication: INFECTION
     Dosage: 750 MG, UNK
     Route: 065
     Dates: start: 20080101
  4. LEVAQUIN [Suspect]
     Indication: BACTERIAL INFECTION
     Dosage: 500 MG, UNK
     Route: 048
     Dates: start: 20080701
  5. LEVAQUIN [Suspect]
     Indication: CELLULITIS OF MALE EXTERNAL GENITAL ORGAN
     Dosage: 750 MG, QD
     Route: 048
     Dates: start: 20080901
  6. LEVAQUIN [Suspect]
     Dosage: 500 MG, UNK
     Route: 048
     Dates: start: 20081101
  7. LEVAQUIN [Suspect]
     Dosage: 500 MG, UNK
     Route: 048
     Dates: start: 20080901

REACTIONS (2)
  - TENDONITIS [None]
  - PLANTAR FASCIITIS [None]
